FAERS Safety Report 9611103 (Version 2)
Quarter: 2013Q4

REPORT INFORMATION
  Report Type: Spontaneous
  Country: US (occurrence: US)
  Receive Date: 20131009
  Receipt Date: 20131018
  Transmission Date: 20140711
  Serious: No
  Sender: FDA-Public Use
  Company Number: US-009507513-1309USA009506

PATIENT
  Age: 34 Year
  Sex: Female

DRUGS (6)
  1. STROMECTOL [Suspect]
     Indication: INFESTATION
     Dosage: SEVEN 3 MG TABLETS
     Route: 048
     Dates: start: 20130828
  2. ALBENZA [Suspect]
     Dosage: 200 MG, 2 DF, QD
     Dates: start: 20130911, end: 2013
  3. NORCO [Concomitant]
     Indication: ENDOMETRIOSIS
     Dosage: 10/325
  4. BENADRYL [Concomitant]
     Indication: LYMPHOEDEMA
  5. HYDROXYZINE [Concomitant]
     Indication: PRURITUS
  6. CORTIZONE [Concomitant]
     Dosage: UNK
     Dates: start: 201309

REACTIONS (27)
  - Drug ineffective [Unknown]
  - Faecal incontinence [Unknown]
  - Hyperaesthesia [Unknown]
  - Sneezing [Unknown]
  - Urine abnormality [Unknown]
  - Feeling abnormal [Unknown]
  - Oropharyngeal pain [Not Recovered/Not Resolved]
  - Hypoaesthesia [Unknown]
  - Unevaluable event [Unknown]
  - Eye pain [Not Recovered/Not Resolved]
  - Eye irritation [Not Recovered/Not Resolved]
  - Swelling [Unknown]
  - Skin wound [Unknown]
  - Cold sweat [Not Recovered/Not Resolved]
  - Pain [Not Recovered/Not Resolved]
  - Infection parasitic [Not Recovered/Not Resolved]
  - Feeling abnormal [Unknown]
  - Poor quality sleep [Unknown]
  - Headache [Not Recovered/Not Resolved]
  - Abnormal sensation in eye [Unknown]
  - Pyrexia [Not Recovered/Not Resolved]
  - Tachycardia [Not Recovered/Not Resolved]
  - Abdominal pain [Not Recovered/Not Resolved]
  - Dizziness [Unknown]
  - Tremor [Unknown]
  - Pruritus [Unknown]
  - Nausea [Not Recovered/Not Resolved]
